FAERS Safety Report 15453577 (Version 2)
Quarter: 2018Q4

REPORT INFORMATION
  Report Type: Spontaneous
  Country: PH (occurrence: PH)
  Receive Date: 20181001
  Receipt Date: 20181214
  Transmission Date: 20190204
  Serious: Yes (Other)
  Sender: FDA-Public Use
  Company Number: PH-009507513-1810PHL000287

PATIENT
  Sex: Female

DRUGS (1)
  1. IMPLANON [Suspect]
     Active Substance: ETONOGESTREL
     Indication: CONTRACEPTION
     Dosage: ONE IMPLANT
     Route: 059

REACTIONS (9)
  - Uterine haemorrhage [Unknown]
  - Vascular injury [Unknown]
  - Endometrial hypoplasia [Unknown]
  - Ectopic pregnancy [Unknown]
  - Pregnancy with implant contraceptive [Unknown]
  - Endometrial disorder [Unknown]
  - Abortion [Unknown]
  - Unintended pregnancy [Unknown]
  - Decreased embryo viability [Unknown]
